FAERS Safety Report 7167290-6 (Version None)
Quarter: 2010Q4

REPORT INFORMATION
  Report Type: 
  Country: None (occurrence: None)
  Receive Date: 20101216
  Receipt Date: 20101207
  Transmission Date: 20110411
  Serious: Yes (Death, Hospitalization, Other)
  Sender: FDA-Public Use
  Company Number: GB-ROCHE-627432

PATIENT
  Sex: Male
  Weight: 99.2 kg

DRUGS (12)
  1. ORLISTAT [Suspect]
     Indication: WEIGHT CONTROL
     Route: 048
     Dates: start: 20060816
  2. INSULIN ASPART [Concomitant]
     Dosage: DRUG REPORTED AS BIPHASIC INSULIN ASPART
  3. METFORMIN [Concomitant]
  4. LISINOPRIL [Concomitant]
  5. ATORVASTATIN [Concomitant]
  6. ASPIRIN [Concomitant]
  7. DOXAZOSIN [Concomitant]
  8. FUROSEMIDE [Concomitant]
  9. VERAPAMIL [Concomitant]
  10. ISOSORBIDE MONONITRATE [Concomitant]
  11. LANSOPRAZOLE [Concomitant]
  12. PREGABALIN [Concomitant]

REACTIONS (5)
  - CARDIAC ARREST [None]
  - HYPOGLYCAEMIA [None]
  - NEPHROPATHY [None]
  - NORMOCHROMIC NORMOCYTIC ANAEMIA [None]
  - RENAL FAILURE ACUTE [None]
